FAERS Safety Report 16915445 (Version 1)
Quarter: 2019Q4

REPORT INFORMATION
  Report Type: Spontaneous
  Country: US (occurrence: US)
  Receive Date: 20191011
  Receipt Date: 20191011
  Transmission Date: 20200122
  Serious: No
  Sender: FDA-Public Use
  Company Number: None

PATIENT
  Age: 32 Year
  Sex: Female
  Weight: 107.55 kg

DRUGS (3)
  1. DOXYCYCLINE HYCLATE 100MG TAB EPI [Suspect]
     Active Substance: DOXYCYCLINE HYCLATE
     Indication: PHARYNGITIS
     Dosage: ?          QUANTITY:14 TABLET(S);?
     Route: 048
     Dates: start: 20191011, end: 20191011
  2. DOXYCYCLINE HYCLATE 100MG TAB EPI [Suspect]
     Active Substance: DOXYCYCLINE HYCLATE
     Indication: SINUSITIS
     Dosage: ?          QUANTITY:14 TABLET(S);?
     Route: 048
     Dates: start: 20191011, end: 20191011
  3. ALBUTEROL IINHALER [Concomitant]

REACTIONS (2)
  - Hypoaesthesia [None]
  - Paraesthesia [None]

NARRATIVE: CASE EVENT DATE: 20191011
